FAERS Safety Report 14124039 (Version 1)
Quarter: 2017Q4

REPORT INFORMATION
  Report Type: Spontaneous
  Country: AU (occurrence: AU)
  Receive Date: 20171025
  Receipt Date: 20171025
  Transmission Date: 20180321
  Serious: Yes (Hospitalization, Other)
  Sender: FDA-Public Use
  Company Number: AU-GILEAD-2017-0298993

PATIENT
  Age: 54 Year
  Sex: Male
  Weight: 82 kg

DRUGS (13)
  1. SUBOXONE [Concomitant]
     Active Substance: BUPRENORPHINE HYDROCHLORIDE\NALOXONE HYDROCHLORIDE
  2. SERTRALINE [Concomitant]
     Active Substance: SERTRALINE HYDROCHLORIDE
  3. SOFOSBUVIR [Suspect]
     Active Substance: SOFOSBUVIR
     Indication: CHRONIC HEPATITIS C
     Dosage: 400 MG, UNK
     Route: 048
     Dates: start: 20161010
  4. TERBINAFINE. [Concomitant]
     Active Substance: TERBINAFINE
  5. MULTIVITAMIN                       /00097801/ [Concomitant]
     Active Substance: VITAMINS
  6. HALOPERIDOL. [Concomitant]
     Active Substance: HALOPERIDOL
  7. UREA. [Concomitant]
     Active Substance: UREA
  8. THIAMINE. [Concomitant]
     Active Substance: THIAMINE
  9. FLUCLOXACILLIN [Concomitant]
     Active Substance: FLUCLOXACILLIN
  10. DAKLINZA [Suspect]
     Active Substance: DACLATASVIR
     Indication: CHRONIC HEPATITIS C
     Dosage: 60 MG, UNK
     Route: 048
  11. VITAMIN B COMPLEX [Concomitant]
     Active Substance: CYANOCOBALAMIN\DEXPANTHENOL\NIACINAMIDE\PYRIDOXINE HYDROCHLORIDE\RIBOFLAVIN 5^-PHOSPHATE SODIUM\THIAMINE HYDROCHLORIDE\VITAMIN B COMPLEX
  12. MAGNESIUM [Concomitant]
     Active Substance: MAGNESIUM
  13. SODIUM VALPROATE [Concomitant]
     Active Substance: VALPROATE SODIUM

REACTIONS (14)
  - Hepatic failure [Recovered/Resolved]
  - Decreased appetite [Recovered/Resolved]
  - Peripheral swelling [Recovered/Resolved]
  - Abdominal pain [Recovered/Resolved]
  - Tinea infection [Unknown]
  - Nausea [Recovered/Resolved]
  - Onychomycosis [Unknown]
  - Alopecia [Recovered/Resolved]
  - Cellulitis [Unknown]
  - Treatment noncompliance [Unknown]
  - Malaise [Unknown]
  - Hypomagnesaemia [Unknown]
  - Schizophrenia [Unknown]
  - Faeces discoloured [Unknown]

NARRATIVE: CASE EVENT DATE: 20170210
